FAERS Safety Report 4817757-8 (Version None)
Quarter: 2005Q3

REPORT INFORMATION
  Report Type: 
  Country: None (occurrence: None)
  Receive Date: 20050929
  Receipt Date: 20050714
  Transmission Date: 20060218
  Serious: No
  Sender: FDA-Public Use
  Company Number: 05P-163-0305964-00

PATIENT
  Age: 76 Year
  Sex: Male
  Weight: 86.1834 kg

DRUGS (11)
  1. HUMIRA [Suspect]
     Indication: RHEUMATOID ARTHRITIS
     Dosage: 40 MG, 1 IN 2 WK, SUBCUTANEOUS
     Route: 058
     Dates: start: 20030701, end: 20041001
  2. NICOTINIC ACID [Suspect]
     Dosage: PER ORAL
     Route: 048
     Dates: start: 20041001, end: 20041101
  3. LEFLUNOMIDE [Concomitant]
  4. GLUCOPHAGE [Concomitant]
  5. ZETTIA [Concomitant]
  6. GLIPIZIDE [Concomitant]
  7. METOPROLOL TARTRATE [Concomitant]
  8. LISINOPRIL [Concomitant]
  9. PRAVASTATIN SODIUM [Concomitant]
  10. PANTOPRAZOLE [Concomitant]
  11. ASPIRIN [Concomitant]

REACTIONS (2)
  - DIARRHOEA [None]
  - DRUG INEFFECTIVE [None]
